FAERS Safety Report 5602281-5 (Version None)
Quarter: 2008Q1

REPORT INFORMATION
  Report Type: 
  Country: None (occurrence: None)
  Receive Date: 20080118
  Receipt Date: 20080114
  Transmission Date: 20080703
  Serious: Yes (Other)
  Sender: FDA-Public Use
  Company Number: A0703154A

PATIENT
  Age: 78 Year
  Sex: Male

DRUGS (1)
  1. METHYLCELLULOSE POWDER REGULAR (METHYLCELLULOSE) [Suspect]
     Indication: DRUG USE FOR UNKNOWN INDICATION

REACTIONS (2)
  - BLOOD GLUCOSE INCREASED [None]
  - GLUCOSE TOLERANCE IMPAIRED [None]
